FAERS Safety Report 4853531-4 (Version None)
Quarter: 2005Q4

REPORT INFORMATION
  Report Type: 
  Country: None (occurrence: None)
  Receive Date: 20051214
  Receipt Date: 20051202
  Transmission Date: 20060501
  Serious: Yes (Death, Hospitalization)
  Sender: FDA-Public Use
  Company Number: JP-JNJFOC-20051200990

PATIENT
  Sex: Female

DRUGS (15)
  1. LEUSTATIN [Suspect]
  2. PREDNISOLONE [Concomitant]
  3. AMIKACIN SULFATE [Concomitant]
     Indication: PNEUMONIA
  4. BIAPENEM [Concomitant]
     Indication: PNEUMONIA
  5. AMPHOTERICIN B [Concomitant]
     Indication: FUNGAL INFECTION
  6. ALBUMIN (HUMAN) [Concomitant]
  7. ALBUMIN (HUMAN) [Concomitant]
  8. MAGNESIUM OXIDE [Concomitant]
     Indication: CONSTIPATION
  9. REBAMIPIDE [Concomitant]
  10. LANSOPRAZOLE [Concomitant]
     Route: 048
  11. SENNOSIDE [Concomitant]
     Indication: CONSTIPATION
     Route: 048
  12. FUROSEMIDE [Concomitant]
     Indication: CARDIAC FAILURE
     Route: 042
  13. RED BLOOD CELLS [Concomitant]
  14. PLATELETS [Concomitant]
  15. PLATELETS [Concomitant]
     Dosage: 10 UNITS

REACTIONS (9)
  - B-CELL SMALL LYMPHOCYTIC LYMPHOMA [None]
  - CARDIAC FAILURE CONGESTIVE [None]
  - HYPOALBUMINAEMIA [None]
  - HYPOPROTEINAEMIA [None]
  - LEUKOPENIA [None]
  - PNEUMONIA [None]
  - PYREXIA [None]
  - RENAL FAILURE [None]
  - THROMBOCYTOPENIA [None]
